FAERS Safety Report 10204220 (Version 1)
Quarter: 2014Q2

REPORT INFORMATION
  Report Type: Spontaneous
  Country: ES (occurrence: ES)
  Receive Date: 20140529
  Receipt Date: 20140529
  Transmission Date: 20141212
  Serious: Yes (Other)
  Sender: FDA-Public Use
  Company Number: ES-ACTAVIS-2014-11416

PATIENT
  Age: 38 Year
  Sex: Female

DRUGS (1)
  1. DOCETAXEL (UNKNOWN) [Suspect]
     Indication: BREAST CANCER STAGE II
     Dosage: UNKNOWN, EVERY 3 WEEKS
     Route: 042

REACTIONS (3)
  - Eccrine squamous syringometaplasia [Recovered/Resolved]
  - Post inflammatory pigmentation change [Not Recovered/Not Resolved]
  - Infusion site extravasation [Recovered/Resolved]
